FAERS Safety Report 13730742 (Version 5)
Quarter: 2020Q3

REPORT INFORMATION
  Report Type: Spontaneous
  Country: US (occurrence: US)
  Receive Date: 20170707
  Receipt Date: 20200812
  Transmission Date: 20201102
  Serious: Yes (Hospitalization, Other)
  Sender: FDA-Public Use
  Company Number: US-JNJFOC-20170430638

PATIENT
  Age: 75 Year
  Sex: Female
  Weight: 56.3 kg

DRUGS (4)
  1. XARELTO [Suspect]
     Active Substance: RIVAROXABAN
     Indication: SEPTIC PHLEBITIS
  2. XARELTO [Suspect]
     Active Substance: RIVAROXABAN
     Indication: DEEP VEIN THROMBOSIS
  3. XARELTO [Suspect]
     Active Substance: RIVAROXABAN
     Indication: MESENTERIC VEIN THROMBOSIS
  4. XARELTO [Suspect]
     Active Substance: RIVAROXABAN
     Indication: THROMBOSIS PROPHYLAXIS
     Route: 048
     Dates: start: 20151006, end: 20151031

REACTIONS (4)
  - Epistaxis [Recovered/Resolved]
  - Haemoptysis [Unknown]
  - Overdose [Unknown]
  - Hereditary haemorrhagic telangiectasia [Unknown]

NARRATIVE: CASE EVENT DATE: 201510
